FAERS Safety Report 20443663 (Version 1)
Quarter: 2022Q1

REPORT INFORMATION
  Report Type: Report from Study
  Country: CA (occurrence: None)
  Receive Date: 20220208
  Receipt Date: 20220208
  Transmission Date: 20220423
  Serious: Yes (Other)
  Sender: FDA-Public Use
  Company Number: CA-PFIZER INC-202101850581

PATIENT
  Age: 33 Year
  Sex: Male

DRUGS (6)
  1. METHOTREXATE [Suspect]
     Active Substance: METHOTREXATE
     Indication: Product used for unknown indication
     Route: 048
  2. METHOTREXATE [Suspect]
     Active Substance: METHOTREXATE
     Route: 048
  3. METHOTREXATE [Suspect]
     Active Substance: METHOTREXATE
     Route: 058
  4. CYCLOSPORINE [Suspect]
     Active Substance: CYCLOSPORINE
     Indication: Product used for unknown indication
     Route: 048
  5. BETAMETHASONE DIPROPIONATE [Concomitant]
     Active Substance: BETAMETHASONE DIPROPIONATE
     Route: 065
  6. PROTOPIC [Concomitant]
     Active Substance: TACROLIMUS
     Route: 061

REACTIONS (15)
  - Dyspnoea [Unknown]
  - Emotional distress [Unknown]
  - Fatigue [Unknown]
  - General physical health deterioration [Unknown]
  - Gingival hypertrophy [Unknown]
  - Haemorrhage [Unknown]
  - Headache [Unknown]
  - Libido decreased [Unknown]
  - Nausea [Unknown]
  - Pain of skin [Unknown]
  - Pruritus [Unknown]
  - Self-consciousness [Unknown]
  - Arthralgia [Unknown]
  - Condition aggravated [Unknown]
  - Psoriasis [Unknown]
